FAERS Safety Report 5850990-5 (Version None)
Quarter: 2008Q3

REPORT INFORMATION
  Report Type: 
  Country: None (occurrence: None)
  Receive Date: 20080820
  Receipt Date: 20080811
  Transmission Date: 20090109
  Serious: Yes (Hospitalization, Other)
  Sender: FDA-Public Use
  Company Number: JP-ROCHE-581108

PATIENT
  Age: 33 Year
  Sex: Male

DRUGS (8)
  1. GANCICLOVIR [Suspect]
     Indication: CYTOMEGALOVIRUS INFECTION
     Route: 065
  2. MYCOPHENOLATE MOFETIL [Suspect]
     Indication: IMMUNOSUPPRESSION
     Route: 065
  3. MYCOPHENOLATE MOFETIL [Suspect]
     Dosage: UP-DOSED
     Route: 065
  4. RITUXIMAB [Suspect]
     Dosage: UNITS: MG/MM3
     Route: 065
  5. TACROLIMUS [Suspect]
     Indication: IMMUNOSUPPRESSION
     Route: 065
  6. TACROLIMUS [Suspect]
     Dosage: INCREASED UP TO TROUGH OF 4 NG/ML
     Route: 065
  7. TACROLIMUS [Suspect]
     Dosage: DOSE REDUCTION
     Route: 065
  8. GAMMAGLOBULIN ANTI CMV [Concomitant]
     Indication: CYTOMEGALOVIRUS INFECTION

REACTIONS (3)
  - CYTOMEGALOVIRUS INFECTION [None]
  - NEPHROPATHY TOXIC [None]
  - TRANSPLANT REJECTION [None]
